FAERS Safety Report 9837236 (Version 1)
Quarter: 2013Q4

REPORT INFORMATION
  Report Type: Spontaneous
  Country: US (occurrence: None)
  Receive Date: 20131205
  Receipt Date: 20131205
  Transmission Date: 20140711
  Serious: Yes (Other)
  Sender: FDA-Public Use
  Company Number: 163-POMAL-13111550

PATIENT
  Age: 76 Year
  Sex: Male
  Weight: 77.11 kg

DRUGS (13)
  1. POMALYST (POMALIDOMIDE) (4 MILLIGRAM, CAPSULES) [Suspect]
     Indication: PLASMA CELL MYELOMA
     Dosage: 4 MG, 1 IN 1 D, PO
     Route: 048
     Dates: start: 20130810
  2. DEXAMETHASONE (DEXAMETHASONE) (UNKNOWN) [Concomitant]
  3. SULFAMETHOXAZOLE-TRIMETHOPRIM (BACTRIM) (TABLETS)? [Concomitant]
  4. AMITRIPTYLINE (AMITRIPTYLINE) (TABLETS) [Concomitant]
  5. TAMSULOSIN (TAMSULOSIN) (CAPSULES0 [Concomitant]
  6. ENALAPRIL (ENALAPRIL) (TABLETS)? [Concomitant]
  7. ACYCLOVIR (ACICLOVIR) (TABLETS) [Concomitant]
  8. LOVENOX (HEPARIN-FRACTION, SODIUM SALT) (INJECTION) [Concomitant]
  9. PROCHLORPERAZINE (PROCHLORPERAZINE) (TABLETS) [Concomitant]
  10. FINASTERIDE (FINASTERIDE) (TABLETS) [Concomitant]
  11. VITAMIN B-12 (CYANOCOBALAMIN) (TABLETS) [Concomitant]
  12. GLUCOSAMINE-CHONDROITIN COMPLEX (OSTEOGESIC PLUS) (TABLETS)? [Concomitant]
  13. ARANESP (DARBEPOETIN ALFA) (UNKNOWN) [Concomitant]

REACTIONS (5)
  - Anaemia [None]
  - Fatigue [None]
  - Decreased appetite [None]
  - Blood creatinine increased [None]
  - No therapeutic response [None]
